FAERS Safety Report 15174028 (Version 1)
Quarter: 2018Q3

REPORT INFORMATION
  Report Type: Report from Study
  Country: US (occurrence: US)
  Receive Date: 20180720
  Receipt Date: 20180720
  Transmission Date: 20181010
  Serious: No
  Sender: FDA-Public Use
  Company Number: US-AMGEN-USASL2018071463

PATIENT
  Age: 65 Year
  Sex: Female

DRUGS (1)
  1. REPATHA [Suspect]
     Active Substance: EVOLOCUMAB
     Indication: HYPERCHOLESTEROLAEMIA
     Dosage: 140 MG, Q2WK
     Route: 065
     Dates: start: 201804

REACTIONS (6)
  - Otitis media [Recovering/Resolving]
  - Hypertension [Recovered/Resolved]
  - Dizziness [Recovered/Resolved]
  - Tooth infection [Recovering/Resolving]
  - Muscle spasms [Recovering/Resolving]
  - Eustachian tube dysfunction [Recovering/Resolving]

NARRATIVE: CASE EVENT DATE: 20180521
